FAERS Safety Report 19493351 (Version 1)
Quarter: 2021Q3

REPORT INFORMATION
  Report Type: Spontaneous
  Country: IT (occurrence: IT)
  Receive Date: 20210705
  Receipt Date: 20210705
  Transmission Date: 20211014
  Serious: Yes (Death)
  Sender: FDA-Public Use
  Company Number: IT-009507513-2106ITA007433

PATIENT
  Age: 68 Year
  Sex: Female

DRUGS (1)
  1. PEMBROLIZUMAB. [Suspect]
     Active Substance: PEMBROLIZUMAB
     Indication: LUNG NEOPLASM MALIGNANT
     Dosage: UNK, PHARMACEUTICAL FORM REPORTED AS SOLUTION FOR INFUSION
     Route: 042
     Dates: start: 20201002, end: 20201002

REACTIONS (1)
  - Hepatitis [Fatal]
